FAERS Safety Report 4527225-9 (Version None)
Quarter: 2004Q4

REPORT INFORMATION
  Report Type: 
  Country: None (occurrence: None)
  Receive Date: 20041215
  Receipt Date: 20041206
  Transmission Date: 20050328
  Serious: Yes (Disabling)
  Sender: FDA-Public Use
  Company Number: PHFR2004GB04495

PATIENT
  Age: 52 Year
  Sex: Female
  Weight: 78 kg

DRUGS (1)
  1. FAMVIR [Suspect]
     Indication: HERPES ZOSTER
     Dosage: 750MG/DAY
     Route: 048
     Dates: start: 20041115, end: 20041117

REACTIONS (2)
  - CHEST DISCOMFORT [None]
  - OEDEMA PERIPHERAL [None]
